FAERS Safety Report 18203858 (Version 1)
Quarter: 2020Q3

REPORT INFORMATION
  Report Type: Spontaneous
  Country: FR (occurrence: FR)
  Receive Date: 20200827
  Receipt Date: 20200827
  Transmission Date: 20201103
  Serious: Yes (Hospitalization)
  Sender: FDA-Public Use
  Company Number: FR-009507513-2008FRA012400

PATIENT
  Age: 61 Year
  Sex: Female
  Weight: 57 kg

DRUGS (7)
  1. NEULASTA [Suspect]
     Active Substance: PEGFILGRASTIM
     Indication: PLASMA CELL MYELOMA
     Route: 058
     Dates: start: 20171224, end: 20171224
  2. EMEND [Suspect]
     Active Substance: APREPITANT
     Indication: PLASMA CELL MYELOMA
     Route: 041
     Dates: start: 20171220, end: 20171221
  3. ZOMETA [Concomitant]
     Active Substance: ZOLEDRONIC ACID
  4. ZELITREX [Concomitant]
     Active Substance: VALACYCLOVIR HYDROCHLORIDE
  5. ZOPHREN (ONDANSETRON HYDROCHLORIDE) [Suspect]
     Active Substance: ONDANSETRON HYDROCHLORIDE
     Indication: PLASMA CELL MYELOMA
     Route: 041
     Dates: start: 20171219, end: 20171220
  6. EMEND [Suspect]
     Active Substance: APREPITANT
     Indication: PLASMA CELL MYELOMA
     Route: 041
     Dates: start: 20171219, end: 20171219
  7. ALKERAN [Suspect]
     Active Substance: MELPHALAN
     Indication: PLASMA CELL MYELOMA
     Route: 041
     Dates: start: 20171219, end: 20171219

REACTIONS (6)
  - Febrile bone marrow aplasia [Recovered/Resolved]
  - Vomiting [Recovered/Resolved]
  - Diarrhoea [Recovered/Resolved]
  - Nausea [Recovered/Resolved]
  - Mucosal inflammation [Recovered/Resolved]
  - Asthenia [Recovered/Resolved]

NARRATIVE: CASE EVENT DATE: 20171222
